FAERS Safety Report 9238553 (Version 1)
Quarter: 2013Q2

REPORT INFORMATION
  Report Type: Report from Study
  Country: DE (occurrence: DE)
  Receive Date: 20130418
  Receipt Date: 20130418
  Transmission Date: 20140414
  Serious: Yes (Hospitalization, Disabling)
  Sender: FDA-Public Use
  Company Number: DE-ASTELLAS-2013EU003342

PATIENT
  Sex: 0
  Weight: 78 kg

DRUGS (4)
  1. PROGRAF [Suspect]
     Dosage: UNK MG, UNKNOWN/D
     Route: 048
     Dates: start: 20130226
  2. RITUXIMAB [Suspect]
     Dosage: 375 MG/M2, UNKNOWN/D
     Route: 042
     Dates: start: 20130221
  3. RITUXIMAB [Suspect]
     Dosage: 375 MG/M2, UNKNOWN/D
     Route: 042
     Dates: start: 20130328
  4. MYFORTIC [Suspect]
     Dosage: 720 MG, BID
     Route: 048
     Dates: start: 20130226

REACTIONS (1)
  - Glomerulonephritis [Recovered/Resolved]
